FAERS Safety Report 25049200 (Version 1)
Quarter: 2025Q1

REPORT INFORMATION
  Report Type: Spontaneous
  Country: DE (occurrence: DE)
  Receive Date: 20250307
  Receipt Date: 20250307
  Transmission Date: 20250408
  Serious: Yes (Other)
  Sender: MERCK SHARP & DOHME LLC
  Company Number: DE-009507513-2259864

PATIENT
  Sex: Female

DRUGS (1)
  1. KEYTRUDA [Suspect]
     Active Substance: PEMBROLIZUMAB
     Indication: Triple negative breast cancer

REACTIONS (8)
  - Atrial fibrillation [Unknown]
  - Surgery [Unknown]
  - N-terminal prohormone brain natriuretic peptide increased [Unknown]
  - Cardioversion [Unknown]
  - Laboratory test abnormal [Unknown]
  - Stress cardiomyopathy [Unknown]
  - Hypertension [Unknown]
  - Troponin T increased [Unknown]
